FAERS Safety Report 9364644 (Version 1)
Quarter: 2013Q2

REPORT INFORMATION
  Report Type: Spontaneous
  Country: US (occurrence: US)
  Receive Date: 20130624
  Receipt Date: 20130624
  Transmission Date: 20140414
  Serious: Yes (Other)
  Sender: FDA-Public Use
  Company Number: US-TEVA-410702USA

PATIENT
  Sex: Female

DRUGS (1)
  1. SEASONIQUE [Suspect]
     Dates: end: 201210

REACTIONS (2)
  - Amenorrhoea [Not Recovered/Not Resolved]
  - Infertility female [Not Recovered/Not Resolved]
